FAERS Safety Report 6845671-5 (Version None)
Quarter: 2010Q3

REPORT INFORMATION
  Report Type: 
  Country: None (occurrence: None)
  Receive Date: 20100715
  Receipt Date: 20070824
  Transmission Date: 20110219
  Serious: No
  Sender: FDA-Public Use
  Company Number: US-PFIZER INC-2007071751

PATIENT
  Sex: Female
  Weight: 45.4 kg

DRUGS (9)
  1. CHANTIX [Suspect]
     Indication: SMOKING CESSATION THERAPY
     Dates: start: 20070730
  2. CITALOPRAM HYDROBROMIDE [Concomitant]
  3. LIPITOR [Concomitant]
  4. INDERAL [Concomitant]
  5. DEMADEX [Concomitant]
  6. XANAX [Concomitant]
  7. RESTORIL [Concomitant]
  8. ACETYLSALICYLIC ACID [Concomitant]
  9. VITAMINS [Concomitant]

REACTIONS (2)
  - ABDOMINAL DISCOMFORT [None]
  - NAUSEA [None]
